FAERS Safety Report 7503430-4 (Version None)
Quarter: 2011Q2

REPORT INFORMATION
  Report Type: 
  Country: None (occurrence: None)
  Receive Date: 20110525
  Receipt Date: 20110517
  Transmission Date: 20111010
  Serious: Yes (Disabling)
  Sender: FDA-Public Use
  Company Number: AU-ROCHE-771645

PATIENT
  Sex: Male
  Weight: 97 kg

DRUGS (5)
  1. PEGASYS [Suspect]
     Indication: HEPATITIS C
     Route: 065
     Dates: start: 20061201, end: 20070101
  2. ENALAPRIL MALEATE [Concomitant]
     Indication: HYPERTENSION
     Dosage: START DATE: LONG TERM, DRUG: RENITECH
     Route: 048
  3. AMLODIPINE [Concomitant]
     Indication: HYPERTENSION
     Dosage: START DATE: LONG TERM
     Route: 048
  4. TESTOSTERONE [Concomitant]
     Dosage: START DATE: LONG TERM
     Route: 030
  5. RIBAVIRIN [Suspect]
     Indication: HEPATITIS C
     Route: 065
     Dates: start: 20060101, end: 20070101

REACTIONS (1)
  - COGNITIVE DISORDER [None]
